FAERS Safety Report 25355999 (Version 1)
Quarter: 2025Q2

REPORT INFORMATION
  Report Type: Spontaneous
  Country: US (occurrence: US)
  Receive Date: 20250525
  Receipt Date: 20250525
  Transmission Date: 20250716
  Serious: Yes (Other)
  Sender: PRINSTON PHARMACEUTICAL
  Company Number: US-PRINSTON PHARMACEUTICAL INC.-2025PRN00177

PATIENT

DRUGS (1)
  1. TADALAFIL [Suspect]
     Active Substance: TADALAFIL

REACTIONS (5)
  - Loss of control of legs [Unknown]
  - Nerve injury [Unknown]
  - Autonomic nervous system imbalance [Unknown]
  - Weight decreased [Unknown]
  - Urinary tract infection [Unknown]
